FAERS Safety Report 18253426 (Version 1)
Quarter: 2020Q3

REPORT INFORMATION
  Report Type: Report from Study
  Country: CA (occurrence: CA)
  Receive Date: 20200910
  Receipt Date: 20200910
  Transmission Date: 20201103
  Serious: Yes (Other)
  Sender: FDA-Public Use
  Company Number: CA-PFIZER INC-2020347525

PATIENT
  Age: 23 Year
  Sex: Female

DRUGS (6)
  1. PROPANOLOL HCL [Suspect]
     Active Substance: PROPRANOLOL HYDROCHLORIDE
     Indication: MIGRAINE
     Dosage: UNK
     Route: 065
  2. TOPIRAMATE. [Suspect]
     Active Substance: TOPIRAMATE
     Indication: MIGRAINE
     Dosage: 100 MG
     Route: 048
  3. BOTULINUM TOXIN TYPE A [Concomitant]
     Active Substance: BOTULINUM TOXIN TYPE A
     Dosage: UNK
     Route: 065
  4. MIRENA [Concomitant]
     Active Substance: LEVONORGESTREL
     Dosage: UNK
     Route: 065
  5. ONDANSETRON HYDROCHLORIDE. [Concomitant]
     Active Substance: ONDANSETRON HYDROCHLORIDE
     Dosage: UNK
     Route: 065
  6. TOPIRAMATE. [Suspect]
     Active Substance: TOPIRAMATE
     Dosage: UNK
     Route: 065

REACTIONS (4)
  - Drug intolerance [Unknown]
  - Pain [Unknown]
  - Hypoaesthesia [Unknown]
  - Drug ineffective [Unknown]
